FAERS Safety Report 21357921 (Version 2)
Quarter: 2022Q4

REPORT INFORMATION
  Report Type: Report from Study
  Country: DE (occurrence: None)
  Receive Date: 20220921
  Receipt Date: 20221110
  Transmission Date: 20230112
  Serious: Yes (Hospitalization)
  Sender: FDA-Public Use
  Company Number: DE-ROCHE-3181694

PATIENT
  Age: 48 Year
  Sex: Female
  Weight: 64 kg

DRUGS (10)
  1. ATEZOLIZUMAB [Suspect]
     Active Substance: ATEZOLIZUMAB
     Indication: COVID-19
     Dosage: DATE OF LAST DOSE PRIOR TO SAE 04/AUG/2022
     Route: 041
     Dates: start: 20220224
  2. PACLITAXEL [Suspect]
     Active Substance: PACLITAXEL
     Indication: COVID-19
     Dosage: DATE OF LAST DOSE PRIOR TO SAE 27/MAY/2022
     Route: 042
     Dates: start: 20220310
  3. CYCLOPHOSPHAMIDE [Suspect]
     Active Substance: CYCLOPHOSPHAMIDE
     Indication: COVID-19
     Dosage: DATE OF LAST DOSE PRIOR TO SAE 04/AUG/2022
     Route: 042
     Dates: start: 20220602
  4. CARBOPLATIN [Suspect]
     Active Substance: CARBOPLATIN
     Indication: COVID-19
     Dosage: DATE OF LAST DOSE PRIOR TO SAE 27/MAY/2022
     Route: 042
     Dates: start: 20220310
  5. EPIRUBICIN [Suspect]
     Active Substance: EPIRUBICIN
     Indication: COVID-19
     Dosage: DATE OF LAST DOSE PRIOR TO SAE 04/AUG/2022
     Route: 042
     Dates: start: 20220602
  6. LEVOTHYROXINE SODIUM [Concomitant]
     Active Substance: LEVOTHYROXINE SODIUM
     Dates: start: 20220203
  7. FILGRASTIM [Concomitant]
     Active Substance: FILGRASTIM
     Dosage: 30 MIO IE OTHER
     Dates: start: 20220514, end: 20220531
  8. FILGRASTIM [Concomitant]
     Active Substance: FILGRASTIM
     Dates: start: 20220625
  9. ZIEXTENZO [Concomitant]
     Active Substance: PEGFILGRASTIM-BMEZ
     Dates: start: 20220603, end: 20220603
  10. AMPICILLIN SODIUM\SULBACTAM SODIUM [Concomitant]
     Active Substance: AMPICILLIN SODIUM\SULBACTAM SODIUM
     Dosage: 1 OR 0.5 MG THREE TIMES DAILY
     Route: 042
     Dates: start: 20220611, end: 20220615

REACTIONS (1)
  - COVID-19 [Recovered/Resolved]

NARRATIVE: CASE EVENT DATE: 20220817
